FAERS Safety Report 18532368 (Version 1)
Quarter: 2020Q4

REPORT INFORMATION
  Report Type: Spontaneous
  Country: US (occurrence: US)
  Receive Date: 20201123
  Receipt Date: 20201123
  Transmission Date: 20210114
  Serious: Yes (Other)
  Sender: FDA-Public Use
  Company Number: US-009507513-2011USA011375

PATIENT
  Age: 70 Year
  Sex: Female

DRUGS (7)
  1. MOLAX [Concomitant]
  2. DIOVAN [Suspect]
     Active Substance: VALSARTAN
  3. BOREA [Concomitant]
     Active Substance: MEGESTROL ACETATE
     Route: 048
  4. SYNTHROID [Concomitant]
     Active Substance: LEVOTHYROXINE SODIUM
     Route: 048
  5. PRINIVIL [Suspect]
     Active Substance: LISINOPRIL
  6. TEKTURNA [Suspect]
     Active Substance: ALISKIREN HEMIFUMARATE
     Indication: HYPERTENSION
     Dosage: 300 MG, QD
     Route: 048
  7. AMLODIPINE [Concomitant]
     Active Substance: AMLODIPINE BESYLATE
     Route: 048

REACTIONS (3)
  - Lip swelling [Recovered/Resolved]
  - Angioedema [Unknown]
  - Pruritus [Recovered/Resolved]

NARRATIVE: CASE EVENT DATE: 20101221
